FAERS Safety Report 8031854-8 (Version None)
Quarter: 2012Q1

REPORT INFORMATION
  Report Type: 
  Country: None (occurrence: None)
  Receive Date: 20120109
  Receipt Date: 20120103
  Transmission Date: 20120608
  Serious: Yes (Hospitalization)
  Sender: FDA-Public Use
  Company Number: US-ABBOTT-11P-163-0881240-00

PATIENT
  Sex: Male
  Weight: 97.61 kg

DRUGS (11)
  1. HUMIRA [Suspect]
     Indication: CROHN'S DISEASE
     Dosage: (160MG LOADING DOSE)
     Dates: start: 20111201, end: 20111201
  2. VERAPAMIL [Concomitant]
     Indication: BLOOD PRESSURE
  3. PREDNISONE TAB [Concomitant]
     Indication: INFLAMMATION
  4. ZANTAC [Concomitant]
     Indication: GASTROOESOPHAGEAL REFLUX DISEASE
  5. PROZAC [Concomitant]
     Indication: POST-TRAUMATIC STRESS DISORDER
  6. NEXIUM [Concomitant]
     Indication: GASTROOESOPHAGEAL REFLUX DISEASE
  7. PENTASA [Concomitant]
     Indication: CROHN'S DISEASE
  8. AVAPRO [Concomitant]
     Indication: BLOOD PRESSURE
  9. BIFERA [Concomitant]
     Indication: MINERAL SUPPLEMENTATION
  10. KLONOPIN [Concomitant]
     Indication: POST-TRAUMATIC STRESS DISORDER
  11. AMITRIPTYLINE HCL [Concomitant]
     Indication: POST-TRAUMATIC STRESS DISORDER

REACTIONS (8)
  - POLLAKIURIA [None]
  - MUSCLE SPASMS [None]
  - BODY TEMPERATURE INCREASED [None]
  - OEDEMA PERIPHERAL [None]
  - ABASIA [None]
  - DYSURIA [None]
  - MONOPLEGIA [None]
  - ASTHENIA [None]
